FAERS Safety Report 15820824 (Version 2)
Quarter: 2019Q1

REPORT INFORMATION
  Report Type: Report from Study
  Country: US (occurrence: US)
  Receive Date: 20190114
  Receipt Date: 20190117
  Transmission Date: 20190417
  Serious: Yes (Hospitalization, Other)
  Sender: FDA-Public Use
  Company Number: US-BRISTOL-MYERS SQUIBB COMPANY-BMS-2019-001519

PATIENT
  Age: 69 Year
  Sex: Female
  Weight: 64.1 kg

DRUGS (2)
  1. DASATINIB. [Suspect]
     Active Substance: DASATINIB
     Indication: NON-SMALL CELL LUNG CANCER
     Dosage: 50 MG, QD
     Route: 048
     Dates: start: 20180503
  2. OSIMERTINIB. [Suspect]
     Active Substance: OSIMERTINIB
     Indication: NON-SMALL CELL LUNG CANCER
     Dosage: 80 MG, QD
     Route: 048
     Dates: start: 20190104

REACTIONS (5)
  - Dysarthria [Unknown]
  - Muscular weakness [Unknown]
  - Brain oedema [Unknown]
  - Hypoaesthesia [Unknown]
  - Mass [Unknown]

NARRATIVE: CASE EVENT DATE: 20190104
